FAERS Safety Report 17692312 (Version 1)
Quarter: 2020Q2

REPORT INFORMATION
  Report Type: Spontaneous
  Country: US (occurrence: US)
  Receive Date: 20200421
  Receipt Date: 20200421
  Transmission Date: 20200714
  Serious: No
  Sender: FDA-Public Use
  Company Number: None

PATIENT
  Age: 79 Year
  Sex: Female
  Weight: 91.8 kg

DRUGS (4)
  1. SYNTHROID [Concomitant]
     Active Substance: LEVOTHYROXINE SODIUM
  2. CARVEDILOL. [Suspect]
     Active Substance: CARVEDILOL
     Indication: MYOCARDIAL INFARCTION
     Dosage: ?          QUANTITY:1 CAPSULE(S);?
     Route: 048
  3. CARVEDILOL. [Suspect]
     Active Substance: CARVEDILOL
     Indication: VENTRICULAR EXTRASYSTOLES
     Dosage: ?          QUANTITY:1 CAPSULE(S);?
     Route: 048
  4. ELIQUIS [Concomitant]
     Active Substance: APIXABAN

REACTIONS (6)
  - Headache [None]
  - Chest pain [None]
  - Heart rate decreased [None]
  - Hypoaesthesia [None]
  - Paraesthesia [None]
  - Product substitution issue [None]

NARRATIVE: CASE EVENT DATE: 20200416
